FAERS Safety Report 8351408-3 (Version None)
Quarter: 2012Q2

REPORT INFORMATION
  Report Type: 
  Country: None (occurrence: None)
  Receive Date: 20120510
  Receipt Date: 20120501
  Transmission Date: 20120825
  Serious: Yes (Hospitalization)
  Sender: FDA-Public Use
  Company Number: US-ASTRAZENECA-2012SE28321

PATIENT
  Sex: Male

DRUGS (1)
  1. SYMBICORT [Suspect]
     Route: 055

REACTIONS (3)
  - PNEUMONIA [None]
  - INTENTIONAL DRUG MISUSE [None]
  - RESPIRATORY DISORDER [None]
